FAERS Safety Report 4847607-5 (Version None)
Quarter: 2005Q4

REPORT INFORMATION
  Report Type: 
  Country: None (occurrence: None)
  Receive Date: 20051205
  Receipt Date: 20051122
  Transmission Date: 20060501
  Serious: Yes (Hospitalization)
  Sender: FDA-Public Use
  Company Number: 2005161924

PATIENT
  Age: 79 Year
  Sex: Male

DRUGS (6)
  1. IRINOTECAN HCL [Suspect]
     Indication: GASTRIC CANCER RECURRENT
     Dosage: SEE IMAGE, INTRAVENOUS
     Route: 042
     Dates: start: 20050914, end: 20051109
  2. IRINOTECAN HCL [Suspect]
     Indication: GASTRIC CANCER RECURRENT
     Dosage: SEE IMAGE, INTRAVENOUS
     Route: 042
     Dates: start: 20050303
  3. TEGAFUR/GIMERACIL/OTERACIL POTASSIUM (TEGAFUR/GIMERACIL/OTERACIL POTAS [Suspect]
     Indication: GASTRIC CANCER RECURRENT
     Dosage: (100 MG), ORAL
     Route: 048
     Dates: start: 20040628, end: 20041222
  4. TEGAFUR/GIMERACIL/OTERACIL POTASSIUM (TEGAFUR/GIMERACIL/OTERACIL POTAS [Suspect]
     Indication: GASTRIC CANCER RECURRENT
     Dosage: (100 MG), ORAL
     Route: 048
     Dates: start: 20050914, end: 20051109
  5. ALLEGRA [Concomitant]
  6. LIVOSTIN [Concomitant]

REACTIONS (2)
  - CONDITION AGGRAVATED [None]
  - INTERSTITIAL LUNG DISEASE [None]
